FAERS Safety Report 6684360-7 (Version None)
Quarter: 2010Q2

REPORT INFORMATION
  Report Type: 
  Country: None (occurrence: None)
  Receive Date: 20100416
  Receipt Date: 20100407
  Transmission Date: 20101027
  Serious: Yes (Hospitalization, Other)
  Sender: FDA-Public Use
  Company Number: JP-JNJFOC-20100306379

PATIENT
  Sex: Female
  Weight: 52 kg

DRUGS (7)
  1. REMICADE [Suspect]
     Indication: RHEUMATOID ARTHRITIS
     Route: 042
  2. PREDONINE [Suspect]
     Indication: RHEUMATOID ARTHRITIS
     Route: 048
  3. METHOTREXATE [Suspect]
     Indication: RHEUMATOID ARTHRITIS
     Route: 048
  4. ISCOTIN [Concomitant]
     Indication: PULMONARY TUBERCULOSIS
     Route: 048
  5. PANVITAN [Concomitant]
     Indication: HYPOVITAMINOSIS
     Route: 048
  6. LORFENAMIN [Concomitant]
     Indication: RHEUMATOID ARTHRITIS
     Route: 048
  7. MYSLEE [Concomitant]
     Indication: INSOMNIA
     Route: 048

REACTIONS (2)
  - CELLULITIS [None]
  - KNEE ARTHROPLASTY [None]
